FAERS Safety Report 4383728-1 (Version None)
Quarter: 2004Q2

REPORT INFORMATION
  Report Type: 
  Country: None (occurrence: None)
  Receive Date: 20040608
  Receipt Date: 20030811
  Transmission Date: 20050107
  Serious: Yes (Other)
  Sender: FDA-Public Use
  Company Number: 200312791BCC

PATIENT
  Age: 74 Year
  Sex: Male
  Weight: 74.8435 kg

DRUGS (3)
  1. ALEVE [Suspect]
     Indication: BACK PAIN
     Dosage: 220 MG, BID , ORAL
     Route: 048
     Dates: start: 20030806
  2. ALEVE [Suspect]
     Indication: BACK PAIN
     Dosage: 220 MG, BID , ORAL
     Route: 048
     Dates: start: 20030809
  3. ALEVE [Suspect]
     Indication: BACK PAIN
     Dosage: 220 MG, BID , ORAL
     Route: 048
     Dates: start: 20030818

REACTIONS (1)
  - BLOOD URINE [None]
